FAERS Safety Report 20176473 (Version 1)
Quarter: 2021Q4

REPORT INFORMATION
  Report Type: Spontaneous
  Country: US (occurrence: US)
  Receive Date: 20211213
  Receipt Date: 20211213
  Transmission Date: 20220303
  Serious: Yes (Other)
  Sender: FDA-Public Use
  Company Number: US-PFIZER INC-202101707187

PATIENT
  Age: 79 Year
  Sex: Male

DRUGS (1)
  1. VYNDAMAX [Suspect]
     Active Substance: TAFAMIDIS
     Dosage: 61 MG

REACTIONS (21)
  - Atrial fibrillation [Unknown]
  - Amyloidosis [Unknown]
  - Arteriosclerosis coronary artery [Unknown]
  - Mitral valve incompetence [Unknown]
  - Aortic stenosis [Unknown]
  - Bradycardia [Unknown]
  - Obesity [Unknown]
  - Hyperlipidaemia [Unknown]
  - Anaemia [Unknown]
  - Aortic valve disease [Unknown]
  - Essential hypertension [Unknown]
  - Hypertensive heart disease [Unknown]
  - Conduction disorder [Unknown]
  - Atrial flutter [Unknown]
  - Sinus bradycardia [Unknown]
  - Chronic left ventricular failure [Unknown]
  - Left ventricular hypertrophy [Unknown]
  - Lumbar spinal stenosis [Unknown]
  - Gait disturbance [Unknown]
  - Dyspnoea [Unknown]
  - Chest pain [Unknown]
